FAERS Safety Report 25868216 (Version 1)
Quarter: 2025Q4

REPORT INFORMATION
  Report Type: Other
  Country: EU (occurrence: EU)
  Receive Date: 20251001
  Receipt Date: 20251001
  Transmission Date: 20260117
  Serious: Yes (Hospitalization)
  Sender: ZYDUS PHARM
  Company Number: None

PATIENT

DRUGS (3)
  1. VALACYCLOVIR HYDROCHLORIDE [Suspect]
     Active Substance: VALACYCLOVIR HYDROCHLORIDE
     Indication: Varicella
     Dosage: 1 DOSAGE FORM EVERY 8 HRS
     Route: 048
     Dates: start: 20250908, end: 20250908
  2. VALACYCLOVIR HYDROCHLORIDE [Suspect]
     Active Substance: VALACYCLOVIR HYDROCHLORIDE
     Dosage: 500 DOSAGE FORM EVERY 8 HRS
     Route: 048
     Dates: start: 20250912, end: 20250914
  3. ACYCLOVIR SODIUM [Suspect]
     Active Substance: ACYCLOVIR SODIUM
     Indication: Varicella
     Dosage: 500 MILLIGRAM EVERY 8 HRS
     Route: 042
     Dates: start: 20250909, end: 20250912

REACTIONS (2)
  - Condition aggravated [Recovering/Resolving]
  - Hepatic cytolysis [Recovering/Resolving]

NARRATIVE: CASE EVENT DATE: 20250912
